FAERS Safety Report 5898250-0 (Version None)
Quarter: 2008Q3

REPORT INFORMATION
  Report Type: 
  Country: None (occurrence: None)
  Receive Date: 20080925
  Receipt Date: 20070803
  Transmission Date: 20090109
  Serious: Yes (Other)
  Sender: FDA-Public Use
  Company Number: A0668127A

PATIENT
  Age: 21 Year
  Sex: Female

DRUGS (21)
  1. WELLBUTRIN XL [Suspect]
     Indication: BIPOLAR DISORDER
     Dosage: 300MG IN THE MORNING
     Route: 048
     Dates: start: 20070101
  2. DEPAKOTE ER [Concomitant]
  3. LIBRIUM [Concomitant]
  4. LEXAPRO [Concomitant]
  5. RITALIN [Concomitant]
  6. PROVIGIL [Concomitant]
  7. PROTONIX [Concomitant]
  8. UNSPECIFIED MEDICATION [Concomitant]
  9. TORSEMIDE [Concomitant]
  10. K-DUR [Concomitant]
  11. NORCO [Concomitant]
  12. HYDROCODONE BITARTRATE [Concomitant]
  13. INDERAL [Concomitant]
  14. LYRICA [Concomitant]
  15. ZOMIG [Concomitant]
  16. CICLOPIROX [Concomitant]
  17. TOPICORT [Concomitant]
  18. ZOCOR [Concomitant]
  19. TRICOR [Concomitant]
  20. SEROQUEL [Concomitant]
  21. NASONEX [Concomitant]

REACTIONS (1)
  - THROMBOCYTOPENIA [None]
